FAERS Safety Report 7579766-8 (Version None)
Quarter: 2011Q2

REPORT INFORMATION
  Report Type: 
  Country: None (occurrence: None)
  Receive Date: 20110622
  Receipt Date: 20110613
  Transmission Date: 20111010
  Serious: Yes (Other)
  Sender: FDA-Public Use
  Company Number: 950649

PATIENT
  Age: 62 Year
  Sex: Female

DRUGS (5)
  1. SODIUM CHLORIDE [Suspect]
     Indication: HAEMODYNAMIC INSTABILITY
     Dosage: INTRAVENOUS (NOT OTHERWISE SPECIFIED)
     Route: 042
  2. NIMODIPINE [Concomitant]
  3. NOREPINEPHRINE BITARTRATE [Suspect]
     Indication: HAEMODYNAMIC INSTABILITY
     Dosage: INTRAVENOUS DRIP
     Route: 041
  4. PHENYLEPHRINE HCL [Suspect]
     Indication: HAEMODYNAMIC INSTABILITY
     Dosage: INTRAVENOUS DRIP
     Route: 041
  5. VERAPAMIL HCL [Concomitant]

REACTIONS (6)
  - SUBARACHNOID HAEMORRHAGE [None]
  - APHASIA [None]
  - INTRACRANIAL ANEURYSM [None]
  - HYDROCEPHALUS [None]
  - CEREBRAL VENTRICLE DILATATION [None]
  - POSTERIOR REVERSIBLE ENCEPHALOPATHY SYNDROME [None]
